FAERS Safety Report 25596065 (Version 1)
Quarter: 2025Q3

REPORT INFORMATION
  Report Type: Spontaneous
  Country: US (occurrence: None)
  Receive Date: 20250722
  Receipt Date: 20250722
  Transmission Date: 20251020
  Serious: Yes (Life-Threatening, Hospitalization)
  Sender: FDA-CTU
  Company Number: None

PATIENT
  Age: 70 Year
  Sex: Female
  Weight: 90.26 kg

DRUGS (27)
  1. JARDIANCE [Suspect]
     Active Substance: EMPAGLIFLOZIN
     Indication: Diabetes mellitus
     Dosage: 1 TABLET DAILY MOUTH ?
     Route: 048
     Dates: end: 20210824
  2. AMLODIPINE [Concomitant]
     Active Substance: AMLODIPINE BESYLATE
  3. ASTROVASTINE [Concomitant]
  4. LASIX [Concomitant]
     Active Substance: FUROSEMIDE
  5. GABAPENTIN [Concomitant]
     Active Substance: GABAPENTIN
  6. HYDROXYZINE HYDROCHLORIDE [Concomitant]
     Active Substance: HYDROXYZINE HYDROCHLORIDE
  7. INSULIN ASPART [Concomitant]
     Active Substance: INSULIN ASPART
  8. INSULIN GLAGINE [Concomitant]
  9. SEMAGLUTIDE [Concomitant]
     Active Substance: SEMAGLUTIDE
  10. LEVOTHYROXINE [Concomitant]
     Active Substance: LEVOTHYROXINE
  11. LOSARTAN [Concomitant]
     Active Substance: LOSARTAN
  12. METOPROLOL TARTRATE [Concomitant]
     Active Substance: METOPROLOL TARTRATE
  13. PANTOPRAZOLE [Concomitant]
     Active Substance: PANTOPRAZOLE
  14. TRAMADOL [Concomitant]
     Active Substance: TRAMADOL
  15. DEVICE [Concomitant]
     Active Substance: DEVICE
  16. DEXCOM [Concomitant]
  17. ASPIRIN [Concomitant]
     Active Substance: ASPIRIN
  18. CALCIUM [Concomitant]
     Active Substance: CALCIUM
  19. CYANCOBALAMINE [Concomitant]
  20. FERROUS SULFATE [Concomitant]
     Active Substance: FERROUS SULFATE
  21. LACTOBACILLUS CAPSULE [Concomitant]
  22. MAGNESIUM OXIDE [Concomitant]
     Active Substance: MAGNESIUM OXIDE
  23. OMEGA-3 ACIDS [Concomitant]
     Active Substance: OMEGA-3 FATTY ACIDS
  24. VITAMIN E [Concomitant]
     Active Substance: .ALPHA.-TOCOPHEROL
  25. WOMENS 50+ MULTI VITAMIN [Concomitant]
  26. ZINC [Concomitant]
     Active Substance: ZINC
  27. ZYRTEC [Concomitant]
     Active Substance: CETIRIZINE HYDROCHLORIDE

REACTIONS (6)
  - Fournier^s gangrene [None]
  - Confusional state [None]
  - Hypophagia [None]
  - Streptococcus test positive [None]
  - Gait inability [None]
  - Asthenia [None]

NARRATIVE: CASE EVENT DATE: 20210808
